FAERS Safety Report 5120050-X (Version None)
Quarter: 2006Q3

REPORT INFORMATION
  Report Type: 
  Country: None (occurrence: None)
  Receive Date: 20060929
  Receipt Date: 20060912
  Transmission Date: 20061208
  Serious: Yes (Other)
  Sender: FDA-Public Use
  Company Number: 14641

PATIENT
  Age: 18 Month
  Sex: Female

DRUGS (3)
  1. VINCRISTINE [Suspect]
     Indication: NEPHROBLASTOMA
  2. DACTINOMYCIN [Suspect]
     Indication: NEPHROBLASTOMA
  3. ADRIAMYCIN PFS [Suspect]
     Indication: NEPHROBLASTOMA

REACTIONS (7)
  - HYPERPLASIA [None]
  - MEDIASTINAL DISORDER [None]
  - NEOPLASM RECURRENCE [None]
  - NEPHROBLASTOMA [None]
  - SINGLE FUNCTIONAL KIDNEY [None]
  - THYMUS DISORDER [None]
  - TUBERCULOSIS [None]
